FAERS Safety Report 25412940 (Version 1)
Quarter: 2025Q2

REPORT INFORMATION
  Report Type: Spontaneous
  Country: ES (occurrence: ES)
  Receive Date: 20250609
  Receipt Date: 20250609
  Transmission Date: 20250716
  Serious: Yes (Other)
  Sender: PFIZER
  Company Number: None

PATIENT
  Age: 44 Year
  Sex: Female

DRUGS (4)
  1. LEVETIRACETAM [Suspect]
     Active Substance: LEVETIRACETAM
     Indication: Clonic convulsion
     Dosage: 1 G, EVERY 12 H
     Route: 042
     Dates: start: 20250429, end: 20250510
  2. BRIVARACETAM [Suspect]
     Active Substance: BRIVARACETAM
     Indication: Epilepsy
     Dosage: 50 MG, EVERY 12 H
     Route: 042
     Dates: start: 20250430
  3. LACOSAMIDE [Suspect]
     Active Substance: LACOSAMIDE
     Indication: Epilepsy
     Dosage: 200 MG, EVERY 12 H
     Route: 042
     Dates: start: 20250429
  4. PROPOFOL [Suspect]
     Active Substance: PROPOFOL
     Indication: Sedation
     Route: 042
     Dates: start: 20250430, end: 20250507

REACTIONS (2)
  - Rhabdomyolysis [Recovered/Resolved]
  - Propofol infusion syndrome [Recovered/Resolved]

NARRATIVE: CASE EVENT DATE: 20250506
